FAERS Safety Report 9268095 (Version 1)
Quarter: 2013Q2

REPORT INFORMATION
  Report Type: Spontaneous
  Country: US (occurrence: US)
  Receive Date: 20130502
  Receipt Date: 20130502
  Transmission Date: 20140414
  Serious: Yes (Hospitalization, Other)
  Sender: FDA-Public Use
  Company Number: US-ALEXION-A201201560

PATIENT
  Age: 88 Year
  Sex: Female
  Weight: 77.1 kg

DRUGS (10)
  1. SOLIRIS 300MG [Suspect]
     Indication: PAROXYSMAL NOCTURNAL HAEMOGLOBINURIA
     Dosage: 600 MG, QW
     Route: 042
     Dates: start: 20090310, end: 20090407
  2. SOLIRIS 300MG [Suspect]
     Dosage: 900 MG, Q2W
     Route: 042
     Dates: start: 20090407
  3. FOLIC ACID [Concomitant]
     Indication: PANCYTOPENIA
     Dosage: 1 MG, QD
     Route: 048
  4. CENTRUM [Concomitant]
     Indication: VITAMIN SUPPLEMENTATION
     Dosage: 1 DF, QD
     Route: 048
  5. TRANXENE [Concomitant]
     Indication: ANXIETY
     Dosage: 7.5 MG, TID PRN
     Route: 048
  6. ARIMIDEX [Concomitant]
     Indication: BREAST CANCER
     Dosage: 1 MG, QD
     Route: 048
  7. ASA [Concomitant]
     Indication: THROMBOSIS PROPHYLAXIS
     Dosage: 81 MG, QD
     Route: 048
  8. VITAMIN B6 [Concomitant]
     Indication: NEUROPATHY PERIPHERAL
     Dosage: 50MG 1/2 QD
     Route: 048
  9. ACIDOPHILUS [Concomitant]
     Indication: GASTROINTESTINAL DISORDER THERAPY
     Dosage: 1 DF, QD
     Route: 048
  10. IMMUNOGLOBULIN [Concomitant]
     Indication: HAPTOGLOBIN ABNORMAL
     Dosage: 10 G Q MONTH PRN
     Route: 042

REACTIONS (3)
  - Breast cancer [Not Recovered/Not Resolved]
  - Cellulitis streptococcal [Recovered/Resolved]
  - Streptococcal bacteraemia [Recovering/Resolving]
